FAERS Safety Report 16004367 (Version 1)
Quarter: 2019Q1

REPORT INFORMATION
  Report Type: Spontaneous
  Country: US (occurrence: US)
  Receive Date: 20190225
  Receipt Date: 20190225
  Transmission Date: 20190418
  Serious: Yes (Hospitalization)
  Sender: FDA-Public Use
  Company Number: None

PATIENT
  Age: 13 Year
  Sex: Male

DRUGS (7)
  1. ARIPIPRAZOLE 15MG [Concomitant]
     Active Substance: ARIPIPRAZOLE
     Dates: start: 20190128, end: 20190225
  2. TAMIFLU [Suspect]
     Active Substance: OSELTAMIVIR PHOSPHATE
     Indication: INFLUENZA
     Route: 048
     Dates: start: 20190209, end: 20190212
  3. FLUOXETINE [Concomitant]
     Active Substance: FLUOXETINE HYDROCHLORIDE
     Dates: start: 20190128, end: 20190225
  4. TRAZODONE [Concomitant]
     Active Substance: TRAZODONE HYDROCHLORIDE
     Dates: start: 20190128, end: 20190225
  5. METHYLPHENIDATE 10MG [Concomitant]
     Active Substance: METHYLPHENIDATE
     Dates: start: 20181206, end: 20190225
  6. PRAZOSIN 2MG [Concomitant]
     Active Substance: PRAZOSIN
     Dates: start: 20190128, end: 20190225
  7. FOCALIN XR 30MG [Concomitant]
     Dates: start: 20181206, end: 20190225

REACTIONS (1)
  - Hallucination, visual [None]

NARRATIVE: CASE EVENT DATE: 20190212
